FAERS Safety Report 6838537-8 (Version None)
Quarter: 2010Q3

REPORT INFORMATION
  Report Type: 
  Country: None (occurrence: None)
  Receive Date: 20100709
  Receipt Date: 20100624
  Transmission Date: 20110219
  Serious: Yes (Other)
  Sender: FDA-Public Use
  Company Number: 2010MA000335

PATIENT
  Age: 63 Year
  Sex: Male

DRUGS (4)
  1. DICLOFENAC SODIUM [Suspect]
     Indication: HIP ARTHROPLASTY
     Dosage: 50 MG; TID; PO
     Route: 048
     Dates: start: 20030220, end: 20041201
  2. BENDROFLUMETHIAZIDE (CON.) [Concomitant]
  3. ATENOLOL (CON.) [Concomitant]
  4. CANDESARTAN (CON.) [Concomitant]

REACTIONS (2)
  - EYE PRURITUS [None]
  - EYE SWELLING [None]
